FAERS Safety Report 19183330 (Version 2)
Quarter: 2021Q2

REPORT INFORMATION
  Report Type: Spontaneous
  Country: US (occurrence: US)
  Receive Date: 20210427
  Receipt Date: 20210507
  Transmission Date: 20210717
  Serious: No
  Sender: FDA-Public Use
  Company Number: US-AMGEN-USASP2021062884

PATIENT
  Age: 85 Year
  Sex: Female

DRUGS (15)
  1. AMILORIDE [Concomitant]
     Active Substance: AMILORIDE
  2. VITAMIN C [Concomitant]
     Active Substance: ASCORBIC ACID
  3. PRAMIPEXOLE. [Concomitant]
     Active Substance: PRAMIPEXOLE
  4. DONEPEZIL. [Concomitant]
     Active Substance: DONEPEZIL
  5. METOPROLOL SUCCINATE. [Concomitant]
     Active Substance: METOPROLOL SUCCINATE
  6. GLUCOSAMINE [Concomitant]
     Active Substance: GLUCOSAMINE
  7. ATORVASTATIN [Concomitant]
     Active Substance: ATORVASTATIN
  8. MAGNESIUM [Concomitant]
     Active Substance: MAGNESIUM
  9. FAMOTIDINE. [Concomitant]
     Active Substance: FAMOTIDINE
  10. CITALOPRAM [Concomitant]
     Active Substance: CITALOPRAM HYDROBROMIDE
  11. METHENAMINE [Concomitant]
     Active Substance: METHENAMINE
  12. OTEZLA [Suspect]
     Active Substance: APREMILAST
     Indication: PSORIASIS
     Dosage: 30 MILLIGRAM, QD
     Route: 048
     Dates: start: 20210421
  13. LYRICA [Concomitant]
     Active Substance: PREGABALIN
  14. VITAMIN D3 [Concomitant]
     Active Substance: CHOLECALCIFEROL
  15. LUTEIN [ZEAXANTHIN] [Concomitant]
     Active Substance: ZEAXANTHIN

REACTIONS (2)
  - Off label use [Unknown]
  - Flatulence [Not Recovered/Not Resolved]

NARRATIVE: CASE EVENT DATE: 202104
